FAERS Safety Report 19948244 (Version 1)
Quarter: 2021Q4

REPORT INFORMATION
  Report Type: Spontaneous
  Country: US (occurrence: US)
  Receive Date: 20211012
  Receipt Date: 20211012
  Transmission Date: 20220303
  Serious: Yes (Hospitalization, Other)
  Sender: FDA-Public Use
  Company Number: US-JNJFOC-20211008995

PATIENT
  Age: 70 Year
  Sex: Female

DRUGS (7)
  1. TOPIRAMATE [Suspect]
     Active Substance: TOPIRAMATE
     Indication: Epilepsy
     Route: 048
  2. INSULIN NOS [Suspect]
     Active Substance: INSULIN NOS
     Indication: Diabetes mellitus
     Route: 065
  3. ENALAPRIL [Concomitant]
     Active Substance: ENALAPRIL
  4. ATENOLOL [Concomitant]
     Active Substance: ATENOLOL
  5. PAROXETINE [Concomitant]
     Active Substance: PAROXETINE
  6. TYLENOL [Concomitant]
     Active Substance: ACETAMINOPHEN
     Indication: Pain
  7. METOPROLOL [Concomitant]
     Active Substance: METOPROLOL

REACTIONS (11)
  - Gait disturbance [Recovered/Resolved]
  - Productive cough [Recovered/Resolved]
  - Vomiting [Recovering/Resolving]
  - Blood glucose increased [Not Recovered/Not Resolved]
  - Hypertension [Not Recovered/Not Resolved]
  - Lower respiratory tract infection [Recovered/Resolved]
  - Headache [Not Recovered/Not Resolved]
  - Chronic obstructive pulmonary disease [Unknown]
  - Restless legs syndrome [Unknown]
  - Renal disorder [Unknown]
  - Therapeutic response unexpected [Unknown]

NARRATIVE: CASE EVENT DATE: 20210101
